FAERS Safety Report 4725786-8 (Version None)
Quarter: 2005Q3

REPORT INFORMATION
  Report Type: 
  Country: None (occurrence: None)
  Receive Date: 20050722
  Receipt Date: 20050722
  Transmission Date: 20060218
  Serious: Yes (Death)
  Sender: FDA-Public Use
  Company Number: None

PATIENT
  Sex: Female
  Weight: 78.9259 kg

DRUGS (3)
  1. IBUPROFEN [Suspect]
     Indication: PAIN
     Dosage: 800MG  TID ORAL
     Route: 048
     Dates: start: 20050707, end: 20050717
  2. ENALAPRIL MALEATE [Concomitant]
  3. FUROSEMIDE [Concomitant]

REACTIONS (1)
  - RENAL FAILURE ACUTE [None]
